APPROVED DRUG PRODUCT: TAGITOL V
Active Ingredient: BARIUM SULFATE
Strength: 40%
Dosage Form/Route: SUSPENSION;ORAL
Application: N208143 | Product #005
Applicant: BRACCO DIAGNOSTICS INC
Approved: Aug 4, 2017 | RLD: Yes | RS: Yes | Type: RX